FAERS Safety Report 5482590-3 (Version None)
Quarter: 2007Q4

REPORT INFORMATION
  Report Type: 
  Country: None (occurrence: None)
  Receive Date: 20071011
  Receipt Date: 20070724
  Transmission Date: 20080405
  Serious: No
  Sender: FDA-Public Use
  Company Number: A0666070A

PATIENT
  Sex: Female

DRUGS (5)
  1. TYKERB [Suspect]
     Indication: DRUG USE FOR UNKNOWN INDICATION
     Route: 048
  2. XELODA [Concomitant]
  3. UNKNOWN MEDICATION [Concomitant]
  4. IMODIUM [Concomitant]
  5. PEDIALYTE [Concomitant]

REACTIONS (1)
  - DIARRHOEA [None]
